FAERS Safety Report 7621560 (Version 5)
Quarter: 2013Q1

REPORT INFORMATION
  Report Type: Spontaneous
  Country: JP (occurrence: JP)
  Receive Date: 20101008
  Receipt Date: 20130104
  Transmission Date: 20140127
  Serious: Yes (Hospitalization)
  Sender: FDA-Public Use
  Company Number: JP-ASTRAZENECA-2010SE46148

PATIENT
  Age: 48 Year
  Sex: Female
  Weight: 51 kg

DRUGS (2)
  1. ZOLADEX [Suspect]
     Indication: BREAST CANCER
     Route: 058
     Dates: start: 20100720, end: 20100913
  2. NOLVADEX D [Suspect]
     Indication: BREAST CANCER
     Route: 048
     Dates: start: 20100630, end: 20100916

REACTIONS (2)
  - Drug eruption [Recovered/Resolved]
  - Skin erosion [Recovering/Resolving]
